FAERS Safety Report 5520785-0 (Version None)
Quarter: 2007Q4

REPORT INFORMATION
  Report Type: 
  Country: None (occurrence: None)
  Receive Date: 20071115
  Receipt Date: 20071115
  Transmission Date: 20080405
  Serious: No
  Sender: FDA-Public Use
  Company Number: None

PATIENT
  Sex: Male
  Weight: 76.2043 kg

DRUGS (3)
  1. CIPROFLOXACIN [Suspect]
     Indication: PROSTATITIS
     Dosage: ONCE TABLET 2X PO
     Route: 048
  2. CIPROFLOXACIN [Suspect]
     Indication: PROSTATITIS
     Dosage: ONCE TABLET 2X PO
     Route: 048
  3. CIPROFLOXACIN [Suspect]
     Indication: PROSTATITIS
     Dosage: ONCE TABLET 2X PO
     Route: 048

REACTIONS (2)
  - GAIT DISTURBANCE [None]
  - NEURALGIA [None]
